FAERS Safety Report 7375441-3 (Version None)
Quarter: 2011Q1

REPORT INFORMATION
  Report Type: 
  Country: None (occurrence: None)
  Receive Date: 20110325
  Receipt Date: 20110323
  Transmission Date: 20110831
  Serious: Yes (Death, Hospitalization)
  Sender: FDA-Public Use
  Company Number: US-B.I. PHARMACEUTICALS,INC./RIDGEFIELD-2011-BP-08942BP

PATIENT
  Age: 87 Year
  Sex: Female

DRUGS (14)
  1. TOMIXICIN [Concomitant]
  2. ASPIRIN [Concomitant]
     Indication: CARDIAC DISORDER
  3. ALBUTEROL [Concomitant]
  4. CLARITIN [Concomitant]
  5. METOPROLOL [Concomitant]
     Indication: HEART RATE
  6. ALLOPURINOL [Concomitant]
  7. POTASSIUM CHLORIDE [Concomitant]
  8. PRADAXA [Suspect]
     Indication: ATRIAL FIBRILLATION
     Route: 048
     Dates: start: 20110101
  9. ATIVAN [Concomitant]
  10. LENOXIN [Concomitant]
  11. ADVAIR DISKUS 100/50 [Concomitant]
  12. COLACE [Concomitant]
  13. FUROSEMIDE [Concomitant]
  14. SYNTHROID [Concomitant]

REACTIONS (2)
  - CARDIAC FAILURE CONGESTIVE [None]
  - PNEUMONIA [None]
